FAERS Safety Report 19879571 (Version 1)
Quarter: 2021Q3

REPORT INFORMATION
  Report Type: Report from Study
  Country: IT (occurrence: IT)
  Receive Date: 20210924
  Receipt Date: 20210924
  Transmission Date: 20211014
  Serious: Yes (Other)
  Sender: FDA-Public Use
  Company Number: IT-TEVA-2021-IT-1956136

PATIENT
  Age: 89 Year
  Sex: Male

DRUGS (9)
  1. ZYLORIC 100 MG COMPRESSE [Concomitant]
     Active Substance: ALLOPURINOL
  2. ENAPREN 20 MG COMPRESSE [Concomitant]
     Active Substance: ENALAPRIL MALEATE
  3. GABAPENTIN. [Concomitant]
     Active Substance: GABAPENTIN
  4. BISOPROLOL FUMARATE. [Concomitant]
     Active Substance: BISOPROLOL FUMARATE
  5. LASIX [Concomitant]
     Active Substance: FUROSEMIDE
  6. REPAGLINIDE. [Suspect]
     Active Substance: REPAGLINIDE
     Indication: TYPE 2 DIABETES MELLITUS
     Dosage: 1 DF
     Route: 048
  7. CARDIOASPIRIN 100 MG COMPRESSE GASTRORESISTENTI [Concomitant]
     Active Substance: ASPIRIN
  8. ARICEPT 10 MG COMPRESSE RIVESTITE CON FILM [Concomitant]
  9. TRITTICO 25 MG/ML GOCCE ORALI, SOLUZIONE [Concomitant]
     Active Substance: TRAZODONE HYDROCHLORIDE

REACTIONS (5)
  - Bradyphrenia [Recovered/Resolved]
  - Medication error [Recovered/Resolved]
  - Hypoglycaemia [Recovered/Resolved]
  - Hypokinesia [Recovered/Resolved]
  - Sopor [Recovered/Resolved]

NARRATIVE: CASE EVENT DATE: 20210619
